FAERS Safety Report 24440532 (Version 2)
Quarter: 2024Q4

REPORT INFORMATION
  Report Type: Spontaneous
  Country: EG (occurrence: EG)
  Receive Date: 20241016
  Receipt Date: 20241024
  Transmission Date: 20250115
  Serious: Yes (Hospitalization, Other)
  Sender: NOVO NORDISK
  Company Number: EG-NOVOPROD-1299164

PATIENT

DRUGS (5)
  1. INSULIN HUMAN [Suspect]
     Active Substance: INSULIN HUMAN
     Indication: Type 1 diabetes mellitus
     Dosage: ACCORDING TO BGL (THE USUAL DOSES ARE 35 U/MORNING AND 40
     Route: 064
  2. ATTOR [Concomitant]
     Indication: Body fat disorder
     Dosage: 2 TABS/MORNING PER DAY (FROM 3 YEARS AGO)
     Route: 064
  3. ANTI DIABETIC [Concomitant]
     Indication: Product used for unknown indication
     Dosage: ONCE DAILY
     Route: 064
     Dates: start: 20240727
  4. PLAVIX [Concomitant]
     Active Substance: CLOPIDOGREL BISULFATE
     Indication: Anticoagulant therapy
     Dosage: UNK
     Route: 064
  5. ASPIRIN [Concomitant]
     Active Substance: ASPIRIN
     Indication: Anticoagulant therapy
     Dosage: 2 TABS/MORNING PER DAY
     Route: 064

REACTIONS (2)
  - Pulse abnormal [Unknown]
  - Foetal exposure during pregnancy [Recovered/Resolved]

NARRATIVE: CASE EVENT DATE: 20201225
